FAERS Safety Report 4407444-2 (Version None)
Quarter: 2004Q3

REPORT INFORMATION
  Report Type: 
  Country: None (occurrence: None)
  Receive Date: 20040721
  Receipt Date: 20040708
  Transmission Date: 20050211
  Serious: Yes (Death)
  Sender: FDA-Public Use
  Company Number: 2004046285

PATIENT
  Age: 69 Year

DRUGS (1)
  1. NORVASC [Suspect]
     Indication: HYPERTENSION
     Dosage: (5 MG), ORAL
     Route: 048

REACTIONS (2)
  - HYPERGLYCAEMIA [None]
  - OVERDOSE [None]
